FAERS Safety Report 4735417-9 (Version None)
Quarter: 2005Q3

REPORT INFORMATION
  Report Type: 
  Country: None (occurrence: None)
  Receive Date: 20050801
  Receipt Date: 20050801
  Transmission Date: 20060218
  Serious: Yes (Hospitalization)
  Sender: FDA-Public Use
  Company Number: None

PATIENT
  Age: 73 Year
  Sex: Male
  Weight: 105.3706 kg

DRUGS (12)
  1. GATIFLOXACIN [Suspect]
     Indication: CELLULITIS
     Dosage: 400MG QD PO
     Route: 048
     Dates: start: 20050116
  2. ASPIRIN [Concomitant]
  3. DIGOXIN [Concomitant]
  4. FUROSEMIDE [Concomitant]
  5. GABAPENTIN [Concomitant]
  6. IRBESARTAN [Concomitant]
  7. . [Concomitant]
  8. GLIPIZIDE [Concomitant]
  9. SPIRONOLACTONE [Concomitant]
  10. RANITIDINE [Concomitant]
  11. METOPROLOL TARTRATE [Concomitant]
  12. LORAZEPAM [Concomitant]

REACTIONS (1)
  - HYPERGLYCAEMIA [None]
